FAERS Safety Report 4703617-X (Version None)
Quarter: 2005Q2

REPORT INFORMATION
  Report Type: 
  Country: None (occurrence: None)
  Receive Date: 20050627
  Receipt Date: 20041011
  Transmission Date: 20051028
  Serious: Yes (Hospitalization)
  Sender: FDA-Public Use
  Company Number: US-JNJFOC-20041003352

PATIENT
  Age: 26 Year
  Sex: Female

DRUGS (1)
  1. FENTANYL [Suspect]
     Indication: PAIN
     Dosage: 75 UG/HR, 1 IN 72 HOUR, TRANSDERMAL
     Route: 062
     Dates: start: 20040927, end: 20040930

REACTIONS (4)
  - HALLUCINATION [None]
  - INCOHERENT [None]
  - OVERDOSE [None]
  - RESPIRATORY RATE DECREASED [None]
